FAERS Safety Report 7358898-3 (Version None)
Quarter: 2011Q1

REPORT INFORMATION
  Report Type: 
  Country: None (occurrence: None)
  Receive Date: 20110317
  Receipt Date: 20110311
  Transmission Date: 20110831
  Serious: Yes (Hospitalization)
  Sender: FDA-Public Use
  Company Number: HU-BRISTOL-MYERS SQUIBB COMPANY-15611957

PATIENT
  Age: 53 Year
  Sex: Female

DRUGS (7)
  1. PROCYCLIDINE [Concomitant]
     Dates: start: 20101121
  2. ARIPIPRAZOLE [Suspect]
     Indication: SCHIZOPHRENIA
     Route: 048
     Dates: start: 20101208, end: 20110309
  3. CLONAZEPAM [Concomitant]
     Dates: start: 20100503
  4. ZOLPIDEM [Concomitant]
     Dates: start: 20101124
  5. POTASSIUM CHLORIDE [Concomitant]
     Dates: start: 20110302
  6. FAMOTIDINE [Concomitant]
     Dates: start: 20101127
  7. FUROSEMIDE [Concomitant]
     Dates: start: 20110302

REACTIONS (1)
  - SCHIZOPHRENIA [None]
